FAERS Safety Report 8313599-X (Version None)
Quarter: 2012Q1

REPORT INFORMATION
  Report Type: 
  Country: None (occurrence: None)
  Receive Date: 20120315
  Receipt Date: 20110426
  Transmission Date: 20120608
  Serious: No
  Sender: FDA-Public Use
  Company Number: PHHY2011US30252

PATIENT
  Age: 55 Year
  Sex: Female
  Weight: 70.3 kg

DRUGS (3)
  1. AMPYRA [Concomitant]
  2. GILENYA [Suspect]
     Indication: MULTIPLE SCLEROSIS
     Dosage: 0.5 MG, DAILY, ORAL
     Route: 048
     Dates: start: 20101229
  3. PROVIGIL [Concomitant]

REACTIONS (3)
  - NAUSEA [None]
  - ASTHENIA [None]
  - VIRAL INFECTION [None]
